FAERS Safety Report 23514536 (Version 4)
Quarter: 2024Q2

REPORT INFORMATION
  Report Type: Spontaneous
  Country: US (occurrence: US)
  Receive Date: 20240212
  Receipt Date: 20240528
  Transmission Date: 20240716
  Serious: No
  Sender: FDA-Public Use
  Company Number: US-PFIZER INC-202400027782

PATIENT
  Age: 81 Year
  Sex: Male
  Weight: 74.83 kg

DRUGS (3)
  1. VYNDAMAX [Suspect]
     Active Substance: TAFAMIDIS
     Indication: Amyloidosis
     Dosage: 61 MG, 1X/DAY
  2. VYNDAMAX [Suspect]
     Active Substance: TAFAMIDIS
     Indication: Cardiac amyloidosis
     Dosage: 61 MG, DAILY
     Dates: start: 20240101
  3. ELIQUIS [Concomitant]
     Active Substance: APIXABAN
     Dosage: 5 MG, 2X/DAY
     Dates: start: 2021

REACTIONS (6)
  - Weight decreased [Unknown]
  - Insomnia [Unknown]
  - Decreased appetite [Unknown]
  - Intentional product misuse [Unknown]
  - Intentional dose omission [Unknown]
  - Disease progression [Unknown]

NARRATIVE: CASE EVENT DATE: 20240131
